FAERS Safety Report 12956217 (Version 1)
Quarter: 2016Q4

REPORT INFORMATION
  Report Type: Spontaneous
  Country: US (occurrence: US)
  Receive Date: 20161118
  Receipt Date: 20161118
  Transmission Date: 20170207
  Serious: No
  Sender: FDA-Public Use
  Company Number: US-JNJFOC-20161006887

PATIENT
  Sex: Male
  Weight: 91.63 kg

DRUGS (2)
  1. COUMADIN [Concomitant]
     Active Substance: WARFARIN SODIUM
     Indication: ANTICOAGULANT THERAPY
     Route: 065
  2. TYLENOL EXTRA STRENGTH [Suspect]
     Active Substance: ACETAMINOPHEN
     Indication: CANCER PAIN
     Dosage: 7 CAPLETS-IN DIVIDED DOSE OF EVERY 4 HOURS.
     Route: 048

REACTIONS (3)
  - Contraindicated product administered [Not Recovered/Not Resolved]
  - Coagulopathy [Not Recovered/Not Resolved]
  - Intentional product use issue [Unknown]
